FAERS Safety Report 24000651 (Version 1)
Quarter: 2024Q2

REPORT INFORMATION
  Report Type: Spontaneous
  Country: US (occurrence: None)
  Receive Date: 20240621
  Receipt Date: 20240621
  Transmission Date: 20240716
  Serious: Yes (Hospitalization)
  Sender: FDA-Public Use
  Company Number: None

PATIENT
  Age: 46 Year
  Sex: Male
  Weight: 91.6 kg

DRUGS (7)
  1. GADOBENATE DIMEGLUMINE [Suspect]
     Active Substance: GADOBENATE DIMEGLUMINE
     Indication: Contrast media deposition
     Dosage: 20 MG ONCE INTRAVENOUS BOLUS?
     Route: 040
     Dates: start: 20240611, end: 20240611
  2. Thiamine tablet 100mg [Concomitant]
     Dates: start: 20240611
  3. Amlodipine tablet 10mg [Concomitant]
     Dates: start: 20240611
  4. Lipitor tablet 20mg [Concomitant]
     Dates: start: 20240611
  5. LISINOPRIL [Concomitant]
     Active Substance: LISINOPRIL
     Dates: start: 20240611
  6. vancomycin (VANCOCIN) 1,000 mg in sodium chloride (NS) 250 mL [Concomitant]
     Dates: start: 20240611
  7. synthroid tablet 125 mcg [Concomitant]
     Dates: start: 20240611

REACTIONS (3)
  - Hyperhidrosis [None]
  - Hypoxia [None]
  - Contrast media reaction [None]

NARRATIVE: CASE EVENT DATE: 20240611
